FAERS Safety Report 8881910 (Version 1)
Quarter: 2012Q4

REPORT INFORMATION
  Report Type: 
  Country: US (occurrence: US)
  Receive Date: 20121101
  Receipt Date: 20121101
  Transmission Date: 20130627
  Serious: No
  Sender: FDA-Public Use
  Company Number: US-PFIZER INC-2012269487

PATIENT
  Age: 27 Year
  Sex: Male
  Weight: 86.17 kg

DRUGS (5)
  1. LYRICA [Suspect]
     Indication: MYOFASCIAL PAIN SYNDROME
     Dosage: 75 mg, 2x/day
  2. LYRICA [Suspect]
     Indication: FIBROMYALGIA
  3. PAMELOR [Concomitant]
     Dosage: 200 mg, daily at night
  4. METHADONE [Concomitant]
     Dosage: (two in morning, one in afternoon and two in evening),3x/day
  5. PERCOCET [Concomitant]
     Dosage: UNK, 2x/day

REACTIONS (5)
  - Drug ineffective [Not Recovered/Not Resolved]
  - Dyskinesia [Not Recovered/Not Resolved]
  - Muscle tightness [Not Recovered/Not Resolved]
  - Muscle twitching [Not Recovered/Not Resolved]
  - Muscular weakness [Not Recovered/Not Resolved]
